FAERS Safety Report 9638586 (Version 2)
Quarter: 2013Q4

REPORT INFORMATION
  Report Type: Spontaneous
  Country: BG (occurrence: BG)
  Receive Date: 20131022
  Receipt Date: 20131028
  Transmission Date: 20140711
  Serious: Yes (Hospitalization)
  Sender: FDA-Public Use
  Company Number: BG-ASTRAZENECA-2013SE76361

PATIENT
  Age: 64 Year
  Sex: Male

DRUGS (8)
  1. BRILIQUE [Suspect]
     Indication: ACUTE MYOCARDIAL INFARCTION
     Dosage: 180 MG LOADING DOSE
     Route: 048
  2. BRILIQUE [Suspect]
     Indication: ACUTE MYOCARDIAL INFARCTION
     Route: 048
  3. CARVEDILOL [Concomitant]
     Indication: ACUTE MYOCARDIAL INFARCTION
     Route: 048
  4. ACETYLSALICYLIC ACID [Concomitant]
     Indication: ACUTE MYOCARDIAL INFARCTION
     Route: 048
  5. ROSUVASTATIN [Concomitant]
     Indication: ACUTE MYOCARDIAL INFARCTION
     Route: 048
  6. TORASEMIDE [Concomitant]
     Indication: ACUTE MYOCARDIAL INFARCTION
     Route: 048
  7. OMEPRAZOLE [Concomitant]
     Route: 048
  8. HEPARIN [Concomitant]
     Dosage: 70-100 E/KG

REACTIONS (8)
  - Cardiac failure congestive [Unknown]
  - Pleural adhesion [Unknown]
  - Pulmonary fibrosis [Unknown]
  - Thrombosis in device [Unknown]
  - Therapy cessation [Unknown]
  - Dyspnoea [Unknown]
  - Hypokalaemia [Unknown]
  - Hyponatraemia [Unknown]
